FAERS Safety Report 13755021 (Version 1)
Quarter: 2017Q3

REPORT INFORMATION
  Report Type: Spontaneous
  Country: US (occurrence: US)
  Receive Date: 20170714
  Receipt Date: 20170714
  Transmission Date: 20171127
  Serious: Yes (Other)
  Sender: FDA-Public Use
  Company Number: US-MYLANLABS-2017M1041472

PATIENT

DRUGS (6)
  1. GUANFACINE. [Suspect]
     Active Substance: GUANFACINE
     Indication: OPPOSITIONAL DEFIANT DISORDER
     Dosage: 0.5MG DAILY
     Route: 065
  2. AMFETAMINE [Suspect]
     Active Substance: AMPHETAMINE
     Indication: ATTENTION DEFICIT/HYPERACTIVITY DISORDER
     Dosage: 10MG EVERY MORNING
     Route: 065
  3. GUANFACINE. [Suspect]
     Active Substance: GUANFACINE
     Indication: ATTENTION DEFICIT/HYPERACTIVITY DISORDER
     Dosage: 0.5MG DAILY
     Route: 065
  4. AMFETAMINE [Suspect]
     Active Substance: AMPHETAMINE
     Dosage: 5MG EXTENDED RELEASE IN MORNING AND LATER INCREASED TO 10MG EVERY MORNING
     Route: 065
  5. AMFETAMINE [Suspect]
     Active Substance: AMPHETAMINE
     Indication: OPPOSITIONAL DEFIANT DISORDER
     Dosage: 5MG EXTENDED RELEASE IN MORNING AND LATER INCREASED TO 10MG EVERY MORNING
     Route: 065
  6. AMFETAMINE [Suspect]
     Active Substance: AMPHETAMINE
     Dosage: 10MG EVERY MORNING
     Route: 065

REACTIONS (8)
  - Decreased appetite [Unknown]
  - Hypertensive crisis [Recovered/Resolved]
  - Malaise [Unknown]
  - Negativism [Unknown]
  - Irritability [Unknown]
  - Abdominal discomfort [Unknown]
  - Hyperhidrosis [Unknown]
  - Headache [Recovered/Resolved]
